FAERS Safety Report 17971228 (Version 1)
Quarter: 2020Q3

REPORT INFORMATION
  Report Type: Spontaneous
  Country: CN (occurrence: CN)
  Receive Date: 20200701
  Receipt Date: 20200701
  Transmission Date: 20201103
  Serious: Yes (Other)
  Sender: FDA-Public Use
  Company Number: CN-ASTRAZENECA-2020SE82262

PATIENT
  Age: 65 Year
  Sex: Female
  Weight: 60 kg

DRUGS (3)
  1. ASPIRIN. [Concomitant]
     Active Substance: ASPIRIN
     Indication: ANTI-PLATELET ANTIBODY
     Dosage: 300.0MG UNKNOWN
     Dates: start: 20200619
  2. TICAGRELOR. [Suspect]
     Active Substance: TICAGRELOR
     Indication: CORONARY ARTERY DISEASE
     Route: 048
     Dates: start: 20200619, end: 20200619
  3. TICAGRELOR. [Suspect]
     Active Substance: TICAGRELOR
     Indication: ANTI-PLATELET ANTIBODY
     Route: 048
     Dates: start: 20200619, end: 20200619

REACTIONS (2)
  - Bronchospasm [Unknown]
  - Dyspnoea [Recovering/Resolving]

NARRATIVE: CASE EVENT DATE: 20200619
